FAERS Safety Report 4744553-2 (Version None)
Quarter: 2005Q3

REPORT INFORMATION
  Report Type: 
  Country: None (occurrence: None)
  Receive Date: 20050810
  Receipt Date: 20050903
  Transmission Date: 20060218
  Serious: Yes (Other)
  Sender: FDA-Public Use
  Company Number: 2005BH000477

PATIENT
  Sex: Male

DRUGS (1)
  1. PROPLEX T [Suspect]
     Indication: HAEMOPHILIA
     Dates: start: 19840123, end: 19840123

REACTIONS (1)
  - HEPATITIS C VIRUS [None]
